FAERS Safety Report 20963830 (Version 1)
Quarter: 2022Q2

REPORT INFORMATION
  Report Type: Other
  Country: FR (occurrence: FR)
  Receive Date: 20220615
  Receipt Date: 20220615
  Transmission Date: 20220720
  Serious: Yes (Hospitalization)
  Sender: FDA-Public Use
  Company Number: None

PATIENT

DRUGS (1)
  1. RUXOLITINIB [Suspect]
     Active Substance: RUXOLITINIB
     Indication: Myelofibrosis
     Dosage: 40 MG, QD (20 MG MORNING AND EVENING)
     Route: 048
     Dates: start: 201909

REACTIONS (1)
  - Alternaria infection [Not Recovered/Not Resolved]

NARRATIVE: CASE EVENT DATE: 20210925
